FAERS Safety Report 19284447 (Version 3)
Quarter: 2021Q2

REPORT INFORMATION
  Report Type: Report from Study
  Country: US (occurrence: US)
  Receive Date: 20210521
  Receipt Date: 20210609
  Transmission Date: 20210717
  Serious: Yes (Death, Hospitalization, Other)
  Sender: FDA-Public Use
  Company Number: US-GILEAD-2021-0526941

PATIENT
  Age: 50 Year
  Sex: Female

DRUGS (3)
  1. VELETRI [Concomitant]
     Active Substance: EPOPROSTENOL
  2. AMBRISENTAN [Suspect]
     Active Substance: AMBRISENTAN
     Indication: PULMONARY ARTERIAL HYPERTENSION
     Dosage: 10 MG, QD
     Route: 048
     Dates: start: 20200131
  3. REVATIO [Concomitant]
     Active Substance: SILDENAFIL CITRATE

REACTIONS (11)
  - Seasonal allergy [Not Recovered/Not Resolved]
  - Oedema [Unknown]
  - Fluid retention [Unknown]
  - Infusion site pruritus [Unknown]
  - Catheter site discharge [Not Recovered/Not Resolved]
  - Death [Fatal]
  - Pericardial effusion [Unknown]
  - Dyspnoea [Unknown]
  - Catheterisation cardiac [Unknown]
  - Pleural effusion [Unknown]
  - Nasal congestion [Not Recovered/Not Resolved]

NARRATIVE: CASE EVENT DATE: 202101
